FAERS Safety Report 15813663 (Version 1)
Quarter: 2019Q1

REPORT INFORMATION
  Report Type: Spontaneous
  Country: US (occurrence: US)
  Receive Date: 20190111
  Receipt Date: 20190111
  Transmission Date: 20190417
  Serious: Yes (Death)
  Sender: FDA-Public Use
  Company Number: US-INSYS THERAPEUTICS, INC-INS201901-000007

PATIENT
  Age: 19 Year
  Sex: Male

DRUGS (10)
  1. DELTA-9 CARBOXY THC [Suspect]
     Active Substance: DELTA(9)-TETRAHYDROCANNABINOLIC ACID
  2. CYCLOPROPYLFENTANYL [Suspect]
     Active Substance: CYCLOPROPYLFENTANYL
  3. HEROIN [Suspect]
     Active Substance: DIAMORPHINE
  4. DIAZEPAM. [Suspect]
     Active Substance: DIAZEPAM
  5. DRONABINOL. [Suspect]
     Active Substance: DRONABINOL
     Indication: PRODUCT USED FOR UNKNOWN INDICATION
  6. NORDIAZEPAM [Suspect]
     Active Substance: NORDAZEPAM
  7. ALPRAZOLAM. [Suspect]
     Active Substance: ALPRAZOLAM
  8. MORPHINE [Suspect]
     Active Substance: MORPHINE
  9. 11-HYDROXY DELTA-9 THC [Suspect]
     Active Substance: 11-HYDROXY-.DELTA.9-TETRAHYDROCANNABINOL
  10. DIPHENHYDRAMINE. [Suspect]
     Active Substance: DIPHENHYDRAMINE

REACTIONS (1)
  - Death [Fatal]

NARRATIVE: CASE EVENT DATE: 2017
